FAERS Safety Report 24915584 (Version 4)
Quarter: 2025Q1

REPORT INFORMATION
  Report Type: Spontaneous
  Country: US (occurrence: US)
  Receive Date: 20250203
  Receipt Date: 20250311
  Transmission Date: 20250409
  Serious: Yes (Death, Life-Threatening, Hospitalization, Other)
  Sender: AUROBINDO
  Company Number: US-AUROBINDO-AUR-APL-2025-005234

PATIENT
  Age: 43 Year
  Sex: Male

DRUGS (3)
  1. CAPECITABINE [Suspect]
     Active Substance: CAPECITABINE
     Indication: Rectal adenocarcinoma
     Dosage: 1000 MILLIGRAM/SQ. METER, TWO TIMES A DAY (FOR 14 DAYS ON AND 7 DAYS OFF EVERY 21 DAYS.)
     Route: 048
  2. CAPECITABINE [Suspect]
     Active Substance: CAPECITABINE
     Dosage: 25000 MILLIGRAM, TWO TIMES A DAY (1000 MG/M2, 14 DAYS ON AND 7 DAYS OFF EVERY 21 DAYS (RECEIVED ONE
     Route: 048
  3. OXALIPLATIN [Suspect]
     Active Substance: OXALIPLATIN
     Indication: Rectal adenocarcinoma
     Route: 042

REACTIONS (17)
  - Neutropenia [Fatal]
  - Pancytopenia [Fatal]
  - Infection [Fatal]
  - Thrombocytopenia [Fatal]
  - Septic shock [Fatal]
  - Hypotension [Fatal]
  - Diarrhoea [Unknown]
  - Nausea [Unknown]
  - Vomiting [Unknown]
  - Asthenia [Unknown]
  - Abdominal pain lower [Unknown]
  - Oral pain [Unknown]
  - Dysphagia [Unknown]
  - Decreased appetite [Unknown]
  - Rash [Unknown]
  - Diabetic ketoacidosis [Unknown]
  - Toxicity to various agents [Unknown]
